FAERS Safety Report 6148083-5 (Version None)
Quarter: 2009Q2

REPORT INFORMATION
  Report Type: 
  Country: None (occurrence: None)
  Receive Date: 20090408
  Receipt Date: 20090401
  Transmission Date: 20091009
  Serious: Yes (Other)
  Sender: FDA-Public Use
  Company Number: B0567990A

PATIENT
  Age: 68 Year
  Sex: Male

DRUGS (2)
  1. ACYCLOVIR [Suspect]
     Dosage: 4000MG PER DAY
     Route: 048
     Dates: start: 20081016, end: 20081020
  2. LOSARTAN POTASSIUM [Concomitant]
     Route: 048
     Dates: start: 20020101

REACTIONS (2)
  - DYSPHAGIA [None]
  - ODYNOPHAGIA [None]
